FAERS Safety Report 17046992 (Version 1)
Quarter: 2019Q4

REPORT INFORMATION
  Report Type: Spontaneous
  Country: GB (occurrence: GB)
  Receive Date: 20191119
  Receipt Date: 20191119
  Transmission Date: 20200122
  Serious: Yes (Other)
  Sender: FDA-Public Use
  Company Number: GB-AUROBINDO-AUR-APL-2019-073167

PATIENT
  Age: 30 Year
  Sex: Female
  Weight: 67.5 kg

DRUGS (2)
  1. COLECALCIFEROL [Concomitant]
     Active Substance: CHOLECALCIFEROL
     Indication: PRODUCT USED FOR UNKNOWN INDICATION
     Dosage: UNK
     Route: 065
  2. PAROXETINE. [Suspect]
     Active Substance: PAROXETINE
     Indication: DEPRESSION
     Dosage: DISCONTINUATION FROM 20MG, DOWN TO 10MG ALTERNATE DAYS
     Route: 048
     Dates: start: 20190310

REACTIONS (3)
  - Vertigo [Recovering/Resolving]
  - Withdrawal syndrome [Unknown]
  - Dizziness [Recovering/Resolving]

NARRATIVE: CASE EVENT DATE: 20191017
